FAERS Safety Report 16492222 (Version 2)
Quarter: 2019Q2

REPORT INFORMATION
  Report Type: Spontaneous
  Country: CA (occurrence: CA)
  Receive Date: 20190628
  Receipt Date: 20190628
  Transmission Date: 20190711
  Serious: Yes (Other)
  Sender: FDA-Public Use
  Company Number: CA-SAMSUNG BIOEPIS-SB-2019-15779

PATIENT
  Age: 19 Year
  Sex: Male

DRUGS (3)
  1. AZATHIOPRINE. [Concomitant]
     Active Substance: AZATHIOPRINE
     Indication: PRODUCT USED FOR UNKNOWN INDICATION
     Dosage: UNKNOWN
     Route: 065
  2. VANCOMYCIN [Concomitant]
     Active Substance: VANCOMYCIN
     Indication: CLOSTRIDIUM DIFFICILE INFECTION
     Dosage: 4.0 DOSAGE FORMS
     Route: 048
  3. INFLIXIMAB [Suspect]
     Active Substance: INFLIXIMAB
     Indication: COLITIS ULCERATIVE
     Route: 042

REACTIONS (11)
  - Body temperature fluctuation [Recovered/Resolved]
  - Therapeutic product effect incomplete [Recovered/Resolved]
  - Pseudopolyposis [Recovered/Resolved]
  - Drug level above therapeutic [Recovered/Resolved]
  - Large intestinal ulcer [Recovered/Resolved]
  - Product use issue [Recovered/Resolved]
  - Blood pressure fluctuation [Recovered/Resolved]
  - Disease recurrence [Recovered/Resolved]
  - Clostridium difficile infection [Recovered/Resolved]
  - Haemorrhoids [Recovered/Resolved]
  - Hypotension [Recovered/Resolved]
